FAERS Safety Report 5283711-8 (Version None)
Quarter: 2007Q2

REPORT INFORMATION
  Report Type: 
  Country: None (occurrence: None)
  Receive Date: 20070402
  Receipt Date: 20070320
  Transmission Date: 20071010
  Serious: Yes (Other)
  Sender: FDA-Public Use
  Company Number: SE-JNJFOC-20070305086

PATIENT
  Age: 40 Year
  Sex: Female
  Weight: 58 kg

DRUGS (3)
  1. REMICADE [Suspect]
     Dosage: GIVEN ON UNKNOWN DATES AT 0 WEEK AND 2 WEEKS.
     Route: 042
  2. REMICADE [Suspect]
     Indication: CROHN'S DISEASE
     Dosage: TREATED IN 2004 OR 2005
     Route: 042
  3. BETAPRED [Concomitant]
     Indication: PREMEDICATION

REACTIONS (2)
  - HYPOAESTHESIA [None]
  - WEIGHT DECREASED [None]
